FAERS Safety Report 5080932-4 (Version None)
Quarter: 2006Q4

REPORT INFORMATION
  Report Type: 
  Country: None (occurrence: None)
  Receive Date: 20060811
  Receipt Date: 20060731
  Transmission Date: 20070319
  Serious: Yes (Hospitalization)
  Sender: FDA-Public Use
  Company Number: 2006096182

PATIENT
  Sex: Female

DRUGS (3)
  1. BEXTRA [Suspect]
     Indication: DRUG USE FOR UNKNOWN INDICATION
     Dates: start: 20020101
  2. CELEBREX [Suspect]
     Indication: DRUG USE FOR UNKNOWN INDICATION
     Dates: start: 20020101
  3. VIOXX [Suspect]
     Indication: DRUG USE FOR UNKNOWN INDICATION
     Dates: start: 20020101

REACTIONS (1)
  - CEREBROVASCULAR ACCIDENT [None]
